FAERS Safety Report 16835376 (Version 1)
Quarter: 2019Q3

REPORT INFORMATION
  Report Type: Spontaneous
  Country: US (occurrence: US)
  Receive Date: 20190920
  Receipt Date: 20190920
  Transmission Date: 20191005
  Serious: No
  Sender: FDA-Public Use
  Company Number: US-AMARIN PHARMA, INC.-2018AMR000247

PATIENT
  Age: 53 Year
  Sex: Male
  Weight: 97.61 kg

DRUGS (3)
  1. AMLODIPINE [Concomitant]
     Active Substance: AMLODIPINE BESYLATE
     Indication: BLOOD PRESSURE ABNORMAL
  2. VASCEPA [Suspect]
     Active Substance: ICOSAPENT ETHYL
     Indication: BLOOD TRIGLYCERIDES INCREASED
     Route: 048
     Dates: start: 201808, end: 201809
  3. NAPROXEN. [Concomitant]
     Active Substance: NAPROXEN
     Indication: PAIN

REACTIONS (6)
  - Product taste abnormal [Unknown]
  - Arthralgia [Not Recovered/Not Resolved]
  - Gout [Not Recovered/Not Resolved]
  - Intentional underdose [Unknown]
  - Off label use [Unknown]
  - Product odour abnormal [Unknown]

NARRATIVE: CASE EVENT DATE: 201808
